FAERS Safety Report 7951197-8 (Version None)
Quarter: 2011Q4

REPORT INFORMATION
  Report Type: 
  Country: None (occurrence: None)
  Receive Date: 20111201
  Receipt Date: 20111118
  Transmission Date: 20120403
  Serious: Yes (Hospitalization)
  Sender: FDA-Public Use
  Company Number: PHHY2011FI78305

PATIENT
  Sex: Female

DRUGS (3)
  1. NITROGLYCERIN [Concomitant]
     Dosage: UNK UKN, UNK
     Route: 048
  2. EXELON [Suspect]
     Indication: DEMENTIA ALZHEIMER'S TYPE
     Dosage: 3 MG, BID
     Dates: start: 20060101
  3. EXELON [Suspect]
     Dosage: 4.5 MG, BID
     Route: 062

REACTIONS (19)
  - OBSTRUCTIVE AIRWAYS DISORDER [None]
  - STRIDOR [None]
  - HYPERTENSION [None]
  - DYSPNOEA [None]
  - OXYGEN SATURATION DECREASED [None]
  - CARDIAC HYPERTROPHY [None]
  - HEART RATE INCREASED [None]
  - CHEST PAIN [None]
  - BUNDLE BRANCH BLOCK LEFT [None]
  - URINARY TRACT INFECTION [None]
  - CARDIAC FAILURE [None]
  - COLD SWEAT [None]
  - UMBILICAL HERNIA [None]
  - OEDEMA PERIPHERAL [None]
  - ATRIAL FIBRILLATION [None]
  - WHEEZING [None]
  - NASAL CONGESTION [None]
  - LEFT VENTRICULAR HYPERTROPHY [None]
  - MYOCARDIAL INFARCTION [None]
